FAERS Safety Report 9520013 (Version 1)
Quarter: 2013Q1

REPORT INFORMATION
  Report Type: Spontaneous
  Country: US (occurrence: None)
  Receive Date: 20130305
  Receipt Date: 20130305
  Transmission Date: 20140127
  Serious: Yes (Disabling)
  Sender: FDA-Public Use
  Company Number: 163-21880-11122345

PATIENT
  Age: 65 Year
  Sex: Female

DRUGS (24)
  1. REVLIMID (LENALIDOMIDE) (25 MILLIGRAM, CAPSULES) [Suspect]
     Indication: PLASMA CELL MYELOMA
     Route: 048
     Dates: start: 201004
  2. EFFEXOR (VENLAFAXINE HYDROCHLORIDE) UNKNOWN [Concomitant]
  3. DECADRON (DEXAMETHASONE) [Concomitant]
  4. ZOMETA (ZOLEDRONIC ACID) [Concomitant]
  5. PROTONIX [Concomitant]
  6. ZANTAC (RANITIDINE HYDROCHLORIDE) [Concomitant]
  7. ZOCOR (SIMVASTATIN) [Concomitant]
  8. MAGNESIUM PLUS PROTEIN (MAGNESIUM) [Concomitant]
  9. ACYCLOVIR (ACICLOVIR) (ACICLOVIR) [Concomitant]
  10. PLAVIX (CLOPIDOGREL SULFATE) [Concomitant]
  11. KLOR-CON (POTASSIUM CHLORIDE) [Concomitant]
  12. COLACE (DOCUSATE SODIUM) [Concomitant]
  13. BACTRIM DS (BACTRIM) [Concomitant]
  14. CLINDAMYCIN PHOSPHATE (CLINDAMYCIN PHOSPHATE) [Concomitant]
  15. HYDROCODONE-ACETAMINOPHEN (VICODIN) (TABLETS) [Concomitant]
  16. ONDANSETRON HCL (ONDANSETRON HYDROCHLORIDE) [Concomitant]
  17. ATARAX (HYDROXYZINE HYDROCHLORIDE) (TABLETS) [Concomitant]
  18. ALBUTEROL SULFATE (ALBUTEROL SULFATE) [Concomitant]
  19. METHADONE (METHADONE) [Concomitant]
  20. EMLA (EMLA) [Concomitant]
  21. CELEXA (CITALOPRAM HYDROBROMIDE) [Concomitant]
  22. VICODIN (VICODIN) [Concomitant]
  23. COUMADIN (WARFARIN SODIUM) [Concomitant]
  24. CLONAZEPAM (CLONAZEPAM) (CLONAZEPAM) [Concomitant]

REACTIONS (4)
  - Neuropathy peripheral [None]
  - Dry skin [None]
  - Rash [None]
  - Plasma cell myeloma recurrent [None]
